FAERS Safety Report 5906697-9 (Version None)
Quarter: 2008Q4

REPORT INFORMATION
  Report Type: 
  Country: None (occurrence: None)
  Receive Date: 20081002
  Receipt Date: 20080915
  Transmission Date: 20090506
  Serious: Yes (Hospitalization)
  Sender: FDA-Public Use
  Company Number: US-AMGEN-US307774

PATIENT
  Sex: Male

DRUGS (1)
  1. CINACALCET [Suspect]
     Indication: HYPERPARATHYROIDISM SECONDARY
     Route: 048
     Dates: start: 20070830, end: 20080821

REACTIONS (3)
  - CONVULSION [None]
  - HYPOAESTHESIA [None]
  - HYPOCALCAEMIA [None]
